FAERS Safety Report 21254368 (Version 1)
Quarter: 2022Q3

REPORT INFORMATION
  Report Type: Report from Study
  Country: JP (occurrence: JP)
  Receive Date: 20220825
  Receipt Date: 20220825
  Transmission Date: 20221027
  Serious: Yes (Hospitalization)
  Sender: FDA-Public Use
  Company Number: JP-MYLANLABS-2022M1088492

PATIENT
  Sex: Male

DRUGS (3)
  1. ERYTHROMYCIN [Suspect]
     Active Substance: ERYTHROMYCIN
     Indication: Prophylaxis
     Dosage: 400 MILLIGRAM, QD,STARTED ONE WEEK PRIOR TO SURGERY AND CONTINUED ON AN OUTPATIENT BASIS EVEN AFTER
     Route: 048
  2. SIVELESTAT [Suspect]
     Active Substance: SIVELESTAT
     Indication: Prophylaxis
     Dosage: 4.8 MILLIGRAM/KILOGRAM, QD, ADMINISTERED FOR 3-5 DAYS IMMEDIATELY AFTER INTRAOPERATIVE TRACHEAL INTU
     Route: 065
  3. METHYLPREDNISOLONE [Suspect]
     Active Substance: METHYLPREDNISOLONE
     Indication: Prophylaxis
     Dosage: 125 MILLIGRAM,IMMEDIATELY PRIOR TO SURGERY AND AT THE TIME OF ANESTHESIA INDUCTION. THE SAME AMOUNT
     Route: 042

REACTIONS (1)
  - Drug ineffective [Unknown]
